FAERS Safety Report 9706010 (Version 2)
Quarter: 2014Q1

REPORT INFORMATION
  Report Type: Spontaneous
  Country: US (occurrence: US)
  Receive Date: 20131122
  Receipt Date: 20140127
  Transmission Date: 20141002
  Serious: Yes (Hospitalization)
  Sender: FDA-Public Use
  Company Number: US-B.I. PHARMACEUTICALS,INC./RIDGEFIELD-2013-BI-38651YA

PATIENT
  Age: 44 Year
  Sex: Male

DRUGS (17)
  1. TAMSULOSIN CAPSULES [Suspect]
     Dosage: 0.4 MG
     Route: 065
  2. BOCEPREVIR [Suspect]
     Indication: HEPATITIS C VIRUS TEST POSITIVE
     Dosage: 2400 MG
     Route: 065
  3. DOXAZOSIN [Suspect]
     Dosage: 8 MG
     Route: 065
  4. QUETIAPINE [Suspect]
     Indication: AFFECTIVE DISORDER
     Dosage: 300 MG
     Route: 048
  5. EFAVIRENZ/EMTRICITABIN/TENOFOVIR DISOPROX FUM [Concomitant]
     Dosage: EFAVIRENZ 600 MG/EMTRICITABINE 200 MG/TENOFOVIR DISOPROXIL 300 MG BY MOUTH DAILY
  6. PEGINTERFERON ALFA-2B (PEGINTERFERON ALFA-2B) [Concomitant]
     Dosage: FORMULATION: INJECTION
     Route: 058
  7. RIBAVIRIN (RIBAVIRIN) [Concomitant]
     Indication: HEPATITIS C VIRUS TEST POSITIVE
     Dosage: 400 MG EVERY MORNING AND 600 MG EVERY EVENING
     Route: 065
  8. TESTOSTERONE CYPIONATE (TESTOSTERONE CIPIONATE) [Concomitant]
     Indication: HYPOGONADISM
     Dosage: FORMULATION: INJECTION
     Route: 030
  9. ONDANSETRON (ONDANSETRON) [Concomitant]
     Indication: NAUSEA
     Dosage: FORMULATION: INJECTION
     Route: 065
  10. ESOMEPRAZOLE (ESOMEPRAZOLE) [Concomitant]
     Dosage: 40 MG
     Route: 065
  11. LITHIUM (LITHIUM) [Concomitant]
     Route: 065
  12. LOSARTAN (LOSARTAN) [Concomitant]
     Dosage: 50 MG
     Route: 065
  13. NAPROXEN (NAPROXEN) [Concomitant]
     Indication: PAIN
     Dosage: 1000 MG
     Route: 065
  14. ACETAMINOPHEN W/OXYCODONE (OXYCODONE HYDROCHLORIDE, PARACETAMOL) [Concomitant]
     Indication: PAIN
     Dosage: STRENGTH: 5-325 MG
     Route: 065
  15. LOPERAMIDE (LOPERAMIDE) [Concomitant]
     Indication: DIARRHOEA
     Route: 065
  16. CODEINE W/GUAIFENESIN [Concomitant]
     Indication: COUGH
     Dosage: STRENGTH: 15 MG/5 ML-10 ML
     Route: 065
  17. CYCLOBENZAPRINE (CYCLOBENZAPRINE) [Concomitant]
     Indication: MUSCLE SPASMS
     Route: 065

REACTIONS (3)
  - Priapism [Recovered/Resolved]
  - Drug interaction [Unknown]
  - Vomiting [Unknown]
